FAERS Safety Report 8456943-5 (Version None)
Quarter: 2012Q2

REPORT INFORMATION
  Report Type: 
  Country: None (occurrence: None)
  Receive Date: 20120621
  Receipt Date: 20120612
  Transmission Date: 20120825
  Serious: Yes (Disabling, Other)
  Sender: FDA-Public Use
  Company Number: US-ASTRAZENECA-2012SE03506

PATIENT
  Age: 38 Year
  Sex: Female
  Weight: 115.7 kg

DRUGS (2)
  1. NEXIUM [Suspect]
     Indication: GASTROOESOPHAGEAL REFLUX DISEASE
     Route: 048
     Dates: start: 20050101
  2. SYNTHROID [Concomitant]
     Indication: THYROID DISORDER

REACTIONS (7)
  - IMPAIRED HEALING [None]
  - DYSPEPSIA [None]
  - INTENTIONAL DRUG MISUSE [None]
  - FIBROMYALGIA [None]
  - MALAISE [None]
  - SYSTEMIC LUPUS ERYTHEMATOSUS [None]
  - DRUG DOSE OMISSION [None]
